FAERS Safety Report 9147291 (Version 4)
Quarter: 2015Q3

REPORT INFORMATION
  Report Type: Report from Study
  Country: CA (occurrence: CA)
  Receive Date: 20130307
  Receipt Date: 20150929
  Transmission Date: 20151125
  Serious: Yes (Hospitalization, Other)
  Sender: FDA-Public Use
  Company Number: CA-ROCHE-1197934

PATIENT
  Age: 47 Year
  Sex: Male
  Weight: 90.7 kg

DRUGS (4)
  1. METHOTREXATE [Concomitant]
     Active Substance: METHOTREXATE
  2. TYLENOL [Concomitant]
     Active Substance: ACETAMINOPHEN
     Route: 065
  3. ACTEMRA [Suspect]
     Active Substance: TOCILIZUMAB
     Indication: JUVENILE IDIOPATHIC ARTHRITIS
     Dosage: THE PATIENT RECEIVED LAST TOCILIZUMAB INFUSION: 10/JUL/2015.
     Route: 042
     Dates: start: 20121107
  4. ACTEMRA [Suspect]
     Active Substance: TOCILIZUMAB
     Dosage: THE PATIENT RECEIVED LAST TOCILIZUMAB INFUSION: 10/JUL/2015.
     Route: 042
     Dates: start: 20131224

REACTIONS (7)
  - Hypoaesthesia [Unknown]
  - Drug hypersensitivity [Unknown]
  - Infection [Unknown]
  - Nasopharyngitis [Unknown]
  - Gait disturbance [Unknown]
  - Back pain [Recovered/Resolved]
  - Pneumonia [Recovered/Resolved]

NARRATIVE: CASE EVENT DATE: 20121231
